FAERS Safety Report 9429288 (Version 2)
Quarter: 2013Q4

REPORT INFORMATION
  Report Type: Spontaneous
  Country: US (occurrence: US)
  Receive Date: 20130730
  Receipt Date: 20131002
  Transmission Date: 20140711
  Serious: No
  Sender: FDA-Public Use
  Company Number: US-009507513-1307USA016537

PATIENT
  Sex: Male
  Weight: 86.17 kg

DRUGS (2)
  1. CLARITIN [Suspect]
     Indication: SINUS HEADACHE
     Dosage: 10 MG, QD
     Route: 048
     Dates: start: 2010, end: 2011
  2. CLARITIN [Suspect]
     Indication: HYPERSENSITIVITY

REACTIONS (1)
  - Drug ineffective [Unknown]
